FAERS Safety Report 4962278-5 (Version None)
Quarter: 2006Q1

REPORT INFORMATION
  Report Type: 
  Country: None (occurrence: None)
  Receive Date: 20060329
  Receipt Date: 20060320
  Transmission Date: 20060701
  Serious: Yes (Death, Hospitalization, Other)
  Sender: FDA-Public Use
  Company Number: 2006-03-1470

PATIENT
  Age: 66 Year
  Sex: Female

DRUGS (10)
  1. PEG-INTRON [Suspect]
     Indication: HEPATITIS C
     Dosage: SUBCUTANEOUS
     Route: 058
     Dates: start: 20051214, end: 20060112
  2. RIBAVIRIN [Suspect]
     Indication: HEPATITIS C
     Dosage: ORAL
     Route: 048
     Dates: start: 20051214, end: 20060112
  3. ACIPHEX [Concomitant]
  4. ALDACTONE [Concomitant]
  5. AMBIEN [Concomitant]
  6. ATIVAN [Concomitant]
  7. COPPER [Concomitant]
  8. LASIX [Concomitant]
  9. PANOKASE (PANCRELIPASE) [Concomitant]
  10. PROCRIT [Concomitant]

REACTIONS (3)
  - ANAEMIA [None]
  - RENAL FAILURE [None]
  - RESPIRATORY DISORDER [None]
